FAERS Safety Report 24357812 (Version 1)
Quarter: 2024Q3

REPORT INFORMATION
  Report Type: Spontaneous
  Country: US (occurrence: US)
  Receive Date: 20240924
  Receipt Date: 20240924
  Transmission Date: 20241017
  Serious: No
  Sender: CIPLA
  Company Number: US-CIPLA LTD.-2024US05505

PATIENT

DRUGS (3)
  1. DICLOFENAC [Suspect]
     Active Substance: DICLOFENAC
     Indication: Product used for unknown indication
     Dosage: UNK- 1ST TUBE
     Route: 061
  2. DICLOFENAC [Suspect]
     Active Substance: DICLOFENAC
     Dosage: UNK-2ND TUBE
     Route: 061
  3. DICLOFENAC [Suspect]
     Active Substance: DICLOFENAC
     Dosage: UNK-3RD TUBE
     Route: 061

REACTIONS (3)
  - Poor quality product administered [Unknown]
  - Product physical consistency issue [Unknown]
  - Product quality issue [Unknown]
